FAERS Safety Report 25216527 (Version 3)
Quarter: 2025Q2

REPORT INFORMATION
  Report Type: Spontaneous
  Country: US (occurrence: US)
  Receive Date: 20250419
  Receipt Date: 20250515
  Transmission Date: 20250717
  Serious: Yes (Hospitalization, Other)
  Sender: UNITED THERAPEUTICS
  Company Number: US-UNITED THERAPEUTICS-UNT-2024-040351

PATIENT
  Age: 67 Year
  Sex: Female

DRUGS (18)
  1. TYVASO DPI [Suspect]
     Active Substance: TREPROSTINIL
     Indication: Pulmonary arterial hypertension
     Dosage: 16 ?G, QID
     Dates: start: 202412, end: 202412
  2. TYVASO DPI [Suspect]
     Active Substance: TREPROSTINIL
     Indication: Interstitial lung disease
     Dosage: 48 ?G, QID
     Dates: start: 202412
  3. TYVASO DPI [Suspect]
     Active Substance: TREPROSTINIL
  4. TYVASO DPI [Suspect]
     Active Substance: TREPROSTINIL
     Indication: Pulmonary arterial hypertension
  5. TYVASO DPI [Suspect]
     Active Substance: TREPROSTINIL
     Indication: Interstitial lung disease
  6. TYVASO DPI [Suspect]
     Active Substance: TREPROSTINIL
     Indication: Pulmonary arterial hypertension
  7. TYVASO DPI [Suspect]
     Active Substance: TREPROSTINIL
     Indication: Interstitial lung disease
  8. TYVASO DPI [Suspect]
     Active Substance: TREPROSTINIL
     Indication: Pulmonary arterial hypertension
  9. TYVASO DPI [Suspect]
     Active Substance: TREPROSTINIL
     Indication: Interstitial lung disease
  10. OFEV [Suspect]
     Active Substance: NINTEDANIB
     Indication: Interstitial lung disease
     Dosage: 150 MG, BID
     Dates: start: 20230330
  11. OFEV [Suspect]
     Active Substance: NINTEDANIB
     Indication: Idiopathic pulmonary fibrosis
     Dosage: 150 MG, BID
     Dates: start: 202304
  12. OFEV [Suspect]
     Active Substance: NINTEDANIB
     Dosage: 100 MG, BID (RESTARTED)
     Dates: start: 202405
  13. OFEV [Suspect]
     Active Substance: NINTEDANIB
  14. OFEV [Suspect]
     Active Substance: NINTEDANIB
  15. OFEV [Suspect]
     Active Substance: NINTEDANIB
  16. ALBUTEROL [Concomitant]
     Active Substance: ALBUTEROL
     Indication: Product used for unknown indication
  17. BENZONATATE [Concomitant]
     Active Substance: BENZONATATE
     Indication: Cough
  18. FAMOTIDINE [Concomitant]
     Active Substance: FAMOTIDINE
     Indication: Gastrointestinal disorder

REACTIONS (16)
  - Pneumonia [Unknown]
  - Dyspnoea [Unknown]
  - Cough [Unknown]
  - Back pain [Recovering/Resolving]
  - Arthralgia [Unknown]
  - Limb discomfort [Unknown]
  - Abdominal pain upper [Recovering/Resolving]
  - Gastrointestinal disorder [Unknown]
  - Sciatica [Unknown]
  - Abdominal discomfort [Not Recovered/Not Resolved]
  - Asthenia [Not Recovered/Not Resolved]
  - Bronchitis [Unknown]
  - Dyspnoea exertional [Not Recovered/Not Resolved]
  - Interstitial lung disease [Unknown]
  - Therapy non-responder [Unknown]
  - Off label use [Unknown]

NARRATIVE: CASE EVENT DATE: 20241201
